FAERS Safety Report 16908514 (Version 1)
Quarter: 2019Q4

REPORT INFORMATION
  Report Type: Spontaneous
  Country: US (occurrence: US)
  Receive Date: 20191010
  Receipt Date: 20191010
  Transmission Date: 20200122
  Serious: Yes (Hospitalization, Other)
  Sender: FDA-Public Use
  Company Number: None

PATIENT
  Age: 62 Year
  Sex: Female
  Weight: 72.9 kg

DRUGS (3)
  1. MELPHALAN. [Suspect]
     Active Substance: MELPHALAN
     Indication: SURGICAL PRECONDITIONING
     Dosage: ?          OTHER FREQUENCY:Q24H X2;?
     Route: 040
     Dates: start: 20190917, end: 20190918
  2. ACYCLOVIR. [Concomitant]
     Active Substance: ACYCLOVIR
     Dates: start: 20190917
  3. PEPCID [Concomitant]
     Active Substance: FAMOTIDINE
     Dates: start: 20190917

REACTIONS (2)
  - Dyspnoea [None]
  - Abdominal pain [None]

NARRATIVE: CASE EVENT DATE: 20190917
